FAERS Safety Report 8326332-2 (Version None)
Quarter: 2012Q2

REPORT INFORMATION
  Report Type: 
  Country: None (occurrence: None)
  Receive Date: 20120501
  Receipt Date: 20120420
  Transmission Date: 20120825
  Serious: Yes (Other)
  Sender: FDA-Public Use
  Company Number: US-ELI_LILLY_AND_COMPANY-US201204007589

PATIENT
  Sex: Male

DRUGS (1)
  1. EFFIENT [Suspect]
     Indication: MYOCARDIAL INFARCTION
     Dosage: 10 MG, UNK
     Dates: start: 20111023

REACTIONS (2)
  - CORONARY ARTERY OCCLUSION [None]
  - VENTRICULAR EXTRASYSTOLES [None]
